FAERS Safety Report 10032178 (Version 1)
Quarter: 2014Q1

REPORT INFORMATION
  Report Type: Spontaneous
  Country: GB (occurrence: GB)
  Receive Date: 20140324
  Receipt Date: 20140324
  Transmission Date: 20141002
  Serious: Yes (Other)
  Sender: FDA-Public Use
  Company Number: GB-SA-2014SA033383

PATIENT
  Age: 30 Year
  Sex: Female

DRUGS (1)
  1. CLEXANE [Suspect]
     Indication: PROPHYLAXIS
     Route: 058

REACTIONS (2)
  - Abortion spontaneous [Unknown]
  - Exposure during pregnancy [Unknown]
